FAERS Safety Report 9731197 (Version 7)
Quarter: 2014Q2

REPORT INFORMATION
  Report Type: Report from Study
  Country: US (occurrence: US)
  Receive Date: 20131205
  Receipt Date: 20140428
  Transmission Date: 20141212
  Serious: Yes (Other)
  Sender: FDA-Public Use
  Company Number: US-ROCHE-1305413

PATIENT
  Age: 72 Year
  Sex: Male

DRUGS (7)
  1. LUCENTIS [Suspect]
     Indication: DIABETIC RETINAL OEDEMA
     Dosage: BOTH EYES
     Route: 065
  2. ALLOPURINOL [Concomitant]
     Indication: GOUT
  3. NAPROSYN [Concomitant]
  4. METFORMIN HYDROCHLORIDE [Concomitant]
     Indication: DIABETES MELLITUS
  5. INSULIN [Concomitant]
  6. LANTUS [Concomitant]
     Indication: DIABETES MELLITUS
  7. LISINOPRIL [Concomitant]
     Indication: BLOOD PRESSURE

REACTIONS (18)
  - Deafness [Unknown]
  - Blindness [Unknown]
  - Visual acuity reduced [Unknown]
  - Eye swelling [Unknown]
  - Speech disorder [Unknown]
  - Abdominal discomfort [Unknown]
  - Fall [Unknown]
  - Head injury [Unknown]
  - Chills [Unknown]
  - Abasia [Unknown]
  - Eye pain [Unknown]
  - Malaise [Unknown]
  - Cough [Unknown]
  - Cardiac murmur [Unknown]
  - Dental caries [Unknown]
  - Scab [Unknown]
  - Nasopharyngitis [Unknown]
  - Temperature regulation disorder [Unknown]
